FAERS Safety Report 9535545 (Version 3)
Quarter: 2013Q4

REPORT INFORMATION
  Report Type: Spontaneous
  Country: IT (occurrence: IT)
  Receive Date: 20130919
  Receipt Date: 20131021
  Transmission Date: 20140711
  Serious: Yes (Life-Threatening, Other)
  Sender: FDA-Public Use
  Company Number: IT-AMGEN-ITASP2013065655

PATIENT
  Age: 64 Year
  Sex: Male

DRUGS (2)
  1. ENBREL [Suspect]
     Indication: RHEUMATOID ARTHRITIS
     Dosage: 50 MG, WEEKLY
     Route: 058
     Dates: start: 20120926, end: 20130913
  2. REUMAFLEX                          /00375701/ [Concomitant]
     Indication: RHEUMATOID ARTHRITIS
     Dosage: 15 MG, UNK
     Route: 058
     Dates: start: 20090301, end: 20130913

REACTIONS (7)
  - Lung neoplasm malignant [Unknown]
  - Small cell carcinoma [Unknown]
  - Metastases to lymph nodes [Unknown]
  - Hemiplegia [Unknown]
  - Lung disorder [Unknown]
  - Dysphonia [Unknown]
  - Lymphadenopathy [Unknown]
